FAERS Safety Report 9401000 (Version 3)
Quarter: 2014Q1

REPORT INFORMATION
  Report Type: Spontaneous
  Country: US (occurrence: US)
  Receive Date: 20130715
  Receipt Date: 20140203
  Transmission Date: 20141002
  Serious: Yes (Hospitalization)
  Sender: FDA-Public Use
  Company Number: US-GLAXOSMITHKLINE-A1033238A

PATIENT
  Age: 65 Year
  Sex: Male
  Weight: 105.5 kg

DRUGS (1)
  1. AVANDIA [Suspect]
     Indication: DIABETES MELLITUS
     Dosage: 4MG PER DAY
     Route: 048
     Dates: start: 200507, end: 200901

REACTIONS (5)
  - Myocardial infarction [Recovered/Resolved]
  - Coronary artery disease [Unknown]
  - Angina pectoris [Unknown]
  - Stent placement [Unknown]
  - Atrial fibrillation [Unknown]
